FAERS Safety Report 6057265-2 (Version None)
Quarter: 2009Q1

REPORT INFORMATION
  Report Type: 
  Country: None (occurrence: None)
  Receive Date: 20090129
  Receipt Date: 20080627
  Transmission Date: 20090719
  Serious: Yes (Other)
  Sender: FDA-Public Use
  Company Number: A0735189A

PATIENT
  Age: 31 Year
  Sex: Male

DRUGS (2)
  1. WELLBUTRIN [Suspect]
     Dosage: 300MG PER DAY
     Route: 048
     Dates: end: 20080605
  2. LITHIUM [Concomitant]

REACTIONS (4)
  - CONVULSION [None]
  - FALL [None]
  - HEAD INJURY [None]
  - LOSS OF CONSCIOUSNESS [None]
